FAERS Safety Report 9458019 (Version 2)
Quarter: 2013Q4

REPORT INFORMATION
  Report Type: Spontaneous
  Country: CA (occurrence: CA)
  Receive Date: 20130814
  Receipt Date: 20131030
  Transmission Date: 20140711
  Serious: Yes (Other)
  Sender: FDA-Public Use
  Company Number: CA-SANOFI-AVENTIS-2013SA079859

PATIENT
  Age: 71 Year
  Sex: Male

DRUGS (6)
  1. PLAVIX [Suspect]
     Indication: PRODUCT USED FOR UNKNOWN INDICATION
     Route: 065
  2. BRILINTA [Suspect]
     Indication: ARTERIAL OCCLUSIVE DISEASE
     Route: 048
     Dates: start: 201203, end: 20130110
  3. ADVAIR [Concomitant]
     Route: 065
  4. ASA [Concomitant]
     Route: 048
     Dates: start: 2012
  5. CRESTOR [Concomitant]
     Route: 065
     Dates: start: 2012
  6. MAVIK [Concomitant]
     Route: 065
     Dates: start: 2012

REACTIONS (7)
  - Oedema peripheral [Not Recovered/Not Resolved]
  - Haemorrhagic diathesis [Not Recovered/Not Resolved]
  - Dyspnoea [Unknown]
  - Gait disturbance [Unknown]
  - Swelling [Unknown]
  - Contusion [Not Recovered/Not Resolved]
  - Rash generalised [Not Recovered/Not Resolved]
